FAERS Safety Report 9270751 (Version 1)
Quarter: 2013Q2

REPORT INFORMATION
  Report Type: Spontaneous
  Country: US (occurrence: US)
  Receive Date: 20130506
  Receipt Date: 20130506
  Transmission Date: 20140414
  Serious: Yes (Other)
  Sender: FDA-Public Use
  Company Number: US-009507513-1304USA015750

PATIENT
  Sex: Female
  Weight: 94.79 kg

DRUGS (9)
  1. DECADRON [Suspect]
     Dosage: UNKNOWN
  2. REMICADE [Suspect]
     Indication: RHEUMATOID ARTHRITIS
     Dosage: FORMULATION: LYOPHILIZED POWDER
     Route: 042
     Dates: start: 2003, end: 2012
  3. REMICADE [Suspect]
     Indication: PSORIATIC ARTHROPATHY
     Dosage: 7 UNITS, FORMULATION: LYOPHILIZED POWDER
     Route: 042
     Dates: start: 2012, end: 2013
  4. REMICADE [Suspect]
     Indication: PSORIASIS
  5. CYMBALTA [Concomitant]
     Indication: PAIN
     Dosage: 60 MG, QD
     Route: 048
     Dates: start: 2012
  6. AMBIEN [Concomitant]
     Indication: SLEEP DISORDER
     Dosage: 1 DF, QD
     Route: 048
  7. VITAMINS (UNSPECIFIED) [Concomitant]
     Indication: ROUTINE HEALTH MAINTENANCE
  8. HYDROCHLOROTHIAZIDE [Concomitant]
     Indication: FLUID RETENTION
     Dosage: 10 MG, QD
     Route: 048
  9. HYDROCHLOROTHIAZIDE [Concomitant]
     Dosage: 20 MG, QD
     Route: 048
     Dates: start: 2013

REACTIONS (18)
  - Spinal column stenosis [Not Recovered/Not Resolved]
  - Intervertebral disc protrusion [Not Recovered/Not Resolved]
  - Psychomotor hyperactivity [Unknown]
  - Psoriatic arthropathy [Not Recovered/Not Resolved]
  - Back pain [Not Recovered/Not Resolved]
  - Abnormal behaviour [Unknown]
  - Dizziness [Unknown]
  - Lethargy [Unknown]
  - Condition aggravated [Recovered/Resolved]
  - Migraine [Recovered/Resolved]
  - Pain [Recovered/Resolved]
  - Poor quality sleep [Unknown]
  - Arthralgia [Unknown]
  - Malaise [Recovered/Resolved]
  - Movement disorder [Recovered/Resolved]
  - Pain [Unknown]
  - Hand deformity [Unknown]
  - Osteoarthritis [Unknown]
